FAERS Safety Report 11422355 (Version 3)
Quarter: 2015Q4

REPORT INFORMATION
  Report Type: Spontaneous
  Country: US (occurrence: US)
  Receive Date: 20150827
  Receipt Date: 20151201
  Transmission Date: 20160304
  Serious: No
  Sender: FDA-Public Use
  Company Number: US-PFIZER INC-2015249045

PATIENT
  Age: 35 Year
  Sex: Female

DRUGS (1)
  1. LYRICA [Suspect]
     Active Substance: PREGABALIN
     Dosage: 75 MG, 2X/DAY  (1 TAB PO BID)
     Route: 048
     Dates: start: 20150715

REACTIONS (6)
  - Myalgia [Unknown]
  - Gastrooesophageal reflux disease [Unknown]
  - Disease recurrence [Unknown]
  - Myositis [Unknown]
  - Hypertension [Unknown]
  - Panic disorder [Unknown]
